FAERS Safety Report 6637948-3 (Version None)
Quarter: 2010Q1

REPORT INFORMATION
  Report Type: 
  Country: None (occurrence: None)
  Receive Date: 20100317
  Receipt Date: 20100310
  Transmission Date: 20100710
  Serious: Yes (Hospitalization)
  Sender: FDA-Public Use
  Company Number: PHHO2009US08174

PATIENT
  Sex: Male
  Weight: 94.4 kg

DRUGS (2)
  1. MYCOPHENOLATE MOFETIL [Suspect]
     Indication: HEART TRANSPLANT
     Dosage: 1500 MG, BID
     Route: 048
     Dates: start: 20071109
  2. NEORAL [Suspect]
     Indication: HEART TRANSPLANT
     Dosage: 175 MG/DAY
     Route: 048
     Dates: start: 20090212

REACTIONS (6)
  - ATRIAL TACHYCARDIA [None]
  - DYSPNOEA [None]
  - EJECTION FRACTION DECREASED [None]
  - FATIGUE [None]
  - HEART TRANSPLANT REJECTION [None]
  - PALPITATIONS [None]
